FAERS Safety Report 8124827-8 (Version None)
Quarter: 2012Q1

REPORT INFORMATION
  Report Type: 
  Country: None (occurrence: None)
  Receive Date: 20120209
  Receipt Date: 20120127
  Transmission Date: 20120608
  Serious: Yes (Life-Threatening, Hospitalization)
  Sender: FDA-Public Use
  Company Number: US-PFIZER INC-K200900789

PATIENT
  Age: 59 Year
  Sex: Male

DRUGS (11)
  1. RAMIPRIL [Suspect]
     Dosage: UNK
     Route: 048
  2. ALDACTONE [Suspect]
     Dosage: UNK
     Route: 048
  3. METFORMIN HCL [Suspect]
     Dosage: 2250 MG, 1X/DAY
     Route: 048
     Dates: start: 19990101, end: 20090227
  4. ASPEGIC 325 [Concomitant]
     Dosage: UNK
  5. IKOREL [Concomitant]
     Dosage: UNK
     Route: 048
  6. CORDARONE [Concomitant]
  7. LASIX [Concomitant]
     Dosage: UNK
  8. ATORVASTATIN [Concomitant]
     Dosage: UNK
     Route: 048
  9. PREVISCAN [Concomitant]
     Route: 048
  10. BISOPROLOL [Concomitant]
     Route: 048
  11. AMLODIPINE BESYLATE [Concomitant]
     Route: 048

REACTIONS (9)
  - TACHYPNOEA [None]
  - LACTIC ACIDOSIS [None]
  - HYPERKALAEMIA [None]
  - RENAL FAILURE ACUTE [None]
  - ANURIA [None]
  - CARDIAC FAILURE [None]
  - CYANOSIS [None]
  - GENERALISED OEDEMA [None]
  - BRONCHITIS [None]
